FAERS Safety Report 10146774 (Version 8)
Quarter: 2014Q3

REPORT INFORMATION
  Report Type: Report from Study
  Country: US (occurrence: US)
  Receive Date: 20140501
  Receipt Date: 20140926
  Transmission Date: 20150326
  Serious: Yes (Other)
  Sender: FDA-Public Use
  Company Number: US-SA-2014SA042898

PATIENT
  Age: 54 Year
  Sex: Female
  Weight: 32 kg

DRUGS (5)
  1. AUBAGIO [Suspect]
     Active Substance: TERIFLUNOMIDE
     Indication: MULTIPLE SCLEROSIS
     Route: 048
     Dates: start: 20140328
  2. BACLOFEN. [Concomitant]
     Active Substance: BACLOFEN
  3. AUBAGIO [Suspect]
     Active Substance: TERIFLUNOMIDE
     Indication: MULTIPLE SCLEROSIS
     Route: 048
     Dates: end: 20140610
  4. VALIUM [Concomitant]
     Active Substance: DIAZEPAM
  5. AUBAGIO [Suspect]
     Active Substance: TERIFLUNOMIDE
     Indication: MULTIPLE SCLEROSIS
     Route: 048
     Dates: start: 20140401

REACTIONS (19)
  - Eye pain [Not Recovered/Not Resolved]
  - Diarrhoea [Unknown]
  - Pulmonary congestion [Not Recovered/Not Resolved]
  - Sinus congestion [Not Recovered/Not Resolved]
  - Weight decreased [Unknown]
  - Foot fracture [Unknown]
  - Hair texture abnormal [Unknown]
  - Visual impairment [Unknown]
  - Weight fluctuation [Unknown]
  - Malaise [Unknown]
  - Dyspnoea [Not Recovered/Not Resolved]
  - Syncope [Not Recovered/Not Resolved]
  - Alopecia [Unknown]
  - Pyrexia [Unknown]
  - Sputum purulent [Not Recovered/Not Resolved]
  - Age-related macular degeneration [Not Recovered/Not Resolved]
  - Pneumonia [Recovered/Resolved]
  - Cough [Unknown]
  - Unevaluable event [Not Recovered/Not Resolved]

NARRATIVE: CASE EVENT DATE: 201404
